FAERS Safety Report 12105460 (Version 1)
Quarter: 2016Q1

REPORT INFORMATION
  Report Type: Spontaneous
  Country: BR (occurrence: BR)
  Receive Date: 20160223
  Receipt Date: 20160223
  Transmission Date: 20160526
  Serious: Yes (Hospitalization, Other)
  Sender: FDA-Public Use
  Company Number: BR-JNJFOC-20160211070

PATIENT
  Sex: Female

DRUGS (1)
  1. TYLEX [Suspect]
     Active Substance: ACETAMINOPHEN\CODEINE PHOSPHATE
     Indication: PRODUCT USED FOR UNKNOWN INDICATION
     Dosage: EVER4 HOURS DURING ONE DAY (UNSPECIFIED DATE)
     Route: 065

REACTIONS (15)
  - Vasculitis [Not Recovered/Not Resolved]
  - Pyrexia [Not Recovered/Not Resolved]
  - Headache [Not Recovered/Not Resolved]
  - Hypothermia [Unknown]
  - Dizziness [Unknown]
  - Rash erythematous [Not Recovered/Not Resolved]
  - Pain in extremity [Unknown]
  - Abdominal pain [Not Recovered/Not Resolved]
  - Chills [Unknown]
  - Vomiting [Unknown]
  - Abasia [Unknown]
  - Swelling [Unknown]
  - Nausea [Unknown]
  - Pain [Unknown]
  - Hyperaesthesia [Not Recovered/Not Resolved]
